FAERS Safety Report 6436745-1 (Version None)
Quarter: 2009Q4

REPORT INFORMATION
  Report Type: 
  Country: None (occurrence: None)
  Receive Date: 20091111
  Receipt Date: 20091102
  Transmission Date: 20100525
  Serious: Yes (Hospitalization)
  Sender: FDA-Public Use
  Company Number: IE-ABBOTT-09P-229-0597556-00

PATIENT
  Sex: Male
  Weight: 55 kg

DRUGS (2)
  1. HUMIRA [Suspect]
     Indication: CROHN'S DISEASE
     Route: 058
     Dates: start: 20080805, end: 20080902
  2. PENTASA [Concomitant]
     Indication: CROHN'S DISEASE
     Route: 048
     Dates: start: 20000727

REACTIONS (4)
  - DIARRHOEA [None]
  - HEADACHE [None]
  - LETHARGY [None]
  - MALAISE [None]
